FAERS Safety Report 6427754-7 (Version None)
Quarter: 2009Q4

REPORT INFORMATION
  Report Type: 
  Country: None (occurrence: None)
  Receive Date: 20091029
  Receipt Date: 20091007
  Transmission Date: 20100525
  Serious: Yes (Death)
  Sender: FDA-Public Use
  Company Number: JPI-P-008793

PATIENT
  Age: 68 Year
  Sex: Female

DRUGS (2)
  1. XYREM [Suspect]
     Indication: NEUROPATHY PERIPHERAL
     Dosage: (7.5 GM), ORAL; (10 GM), ORAL
     Route: 048
     Dates: start: 20050629
  2. XYREM [Suspect]
     Indication: NEUROPATHY PERIPHERAL
     Dosage: (7.5 GM), ORAL; (10 GM), ORAL
     Route: 048
     Dates: start: 20090904

REACTIONS (1)
  - DEATH [None]
